FAERS Safety Report 6110705-2 (Version None)
Quarter: 2009Q1

REPORT INFORMATION
  Report Type: 
  Country: None (occurrence: None)
  Receive Date: 20090309
  Receipt Date: 20090225
  Transmission Date: 20090719
  Serious: Yes (Hospitalization)
  Sender: FDA-Public Use
  Company Number: DAV-AE-MTX-09-014

PATIENT
  Age: 74 Year
  Sex: Female

DRUGS (1)
  1. METHOTREXATE [Suspect]
     Indication: DERMATOMYOSITIS

REACTIONS (5)
  - BREAST CANCER [None]
  - BREAST MASS [None]
  - CALCINOSIS [None]
  - FATIGUE [None]
  - SOFT TISSUE DISORDER [None]
